FAERS Safety Report 9676132 (Version 2)
Quarter: 2013Q4

REPORT INFORMATION
  Report Type: Spontaneous
  Country: US (occurrence: US)
  Receive Date: 20131107
  Receipt Date: 20131126
  Transmission Date: 20140711
  Serious: Yes (Other)
  Sender: FDA-Public Use
  Company Number: US-PFIZER INC-2013313064

PATIENT
  Age: 68 Year
  Sex: Male

DRUGS (1)
  1. BOSULIF [Suspect]
     Dosage: 200 MG, ONCE DAILY
     Route: 048
     Dates: start: 20130909, end: 20131014

REACTIONS (3)
  - Speech disorder [Unknown]
  - Gait disturbance [Unknown]
  - Incontinence [Unknown]
